FAERS Safety Report 7516768-1 (Version None)
Quarter: 2011Q2

REPORT INFORMATION
  Report Type: 
  Country: None (occurrence: None)
  Receive Date: 20110601
  Receipt Date: 20110526
  Transmission Date: 20111010
  Serious: Yes (Death)
  Sender: FDA-Public Use
  Company Number: PHHY2011GB46461

PATIENT
  Age: 54 Year
  Sex: Female

DRUGS (8)
  1. TRAMADOL HCL [Suspect]
  2. ALCOHOL [Suspect]
  3. CODEINE SULFATE [Suspect]
  4. DOXYLAMINE SUCCINATE [Suspect]
  5. ACETAMINOPHEN [Suspect]
  6. DIHYDROCODEINE BITARTRATE INJ [Suspect]
  7. CHLORDIAZEPOXIDE [Suspect]
  8. DMD [Suspect]

REACTIONS (2)
  - ENCEPHALITIS [None]
  - SEPSIS [None]
